FAERS Safety Report 8449657-9 (Version None)
Quarter: 2012Q2

REPORT INFORMATION
  Report Type: 
  Country: None (occurrence: None)
  Receive Date: 20120605
  Receipt Date: 20120525
  Transmission Date: 20120825
  Serious: Yes (Other)
  Sender: FDA-Public Use
  Company Number: 2012032456

PATIENT
  Sex: Female

DRUGS (1)
  1. HIZENTRA [Suspect]
     Dosage: (SUBCUTANEOUS)

REACTIONS (3)
  - INFUSION SITE SWELLING [None]
  - KIDNEY INFECTION [None]
  - SINUSITIS [None]
